FAERS Safety Report 9217110 (Version 3)
Quarter: 2013Q3

REPORT INFORMATION
  Report Type: Report from Study
  Country: JP (occurrence: JP)
  Receive Date: 20130408
  Receipt Date: 20130906
  Transmission Date: 20140515
  Serious: No
  Sender: FDA-Public Use
  Company Number: JP-UCBSA-082353

PATIENT
  Age: 53 Year
  Sex: Male

DRUGS (4)
  1. E KEPPRA [Suspect]
     Indication: PARTIAL SEIZURES WITH SECONDARY GENERALISATION
     Route: 048
     Dates: start: 20120406
  2. TS-1 [Suspect]
     Dosage: DOSE: 120MG
     Route: 048
     Dates: start: 20120517
  3. SELENICA-R [Concomitant]
     Indication: GRAND MAL CONVULSION
     Dosage: DOSE: 800MG
     Route: 048
  4. URSO [Concomitant]
     Dosage: DOSE: 100MG
     Route: 048

REACTIONS (2)
  - Red blood cell count decreased [Recovered/Resolved]
  - White blood cell count decreased [Recovered/Resolved]
